FAERS Safety Report 4869372-8 (Version None)
Quarter: 2005Q4

REPORT INFORMATION
  Report Type: 
  Country: None (occurrence: None)
  Receive Date: 20051230
  Receipt Date: 20051222
  Transmission Date: 20060501
  Serious: Yes (Other)
  Sender: FDA-Public Use
  Company Number: DE-AVENTIS-200512970DE

PATIENT
  Age: 76 Year
  Sex: Male

DRUGS (5)
  1. LANTUS [Suspect]
  2. AMARYL [Suspect]
  3. CAPTOHEXAL [Suspect]
  4. ASPIRIN [Suspect]
  5. METFORMIN [Concomitant]

REACTIONS (1)
  - ANGIONEUROTIC OEDEMA [None]
